FAERS Safety Report 21267028 (Version 1)
Quarter: 2022Q3

REPORT INFORMATION
  Report Type: Spontaneous
  Country: US (occurrence: None)
  Receive Date: 20220826
  Receipt Date: 20220826
  Transmission Date: 20221026
  Serious: Yes (Hospitalization)
  Sender: FDA-Public Use
  Company Number: None

PATIENT
  Age: 68 Year
  Sex: Female

DRUGS (1)
  1. HUMIRA [Suspect]
     Active Substance: ADALIMUMAB
     Indication: Crohn^s disease
     Dosage: 40 MG EVERY 7 DAYS SC?
     Route: 058
     Dates: start: 202106

REACTIONS (5)
  - Condition aggravated [None]
  - Gastrointestinal disorder [None]
  - Pain [None]
  - Dehydration [None]
  - Renal failure [None]

NARRATIVE: CASE EVENT DATE: 20220810
